FAERS Safety Report 8486064-7 (Version None)
Quarter: 2012Q3

REPORT INFORMATION
  Report Type: 
  Country: None (occurrence: None)
  Receive Date: 20120703
  Receipt Date: 20120618
  Transmission Date: 20120928
  Serious: Yes (Hospitalization, Other)
  Sender: FDA-Public Use
  Company Number: JP-WATSON-2012-11219

PATIENT
  Age: 5 Month
  Sex: Female

DRUGS (1)
  1. VALPROATE SODIUM [Suspect]
     Indication: CONVULSION
     Dosage: 30 MG/KG, UNK
     Route: 065

REACTIONS (2)
  - CONVULSION [None]
  - PARADOXICAL DRUG REACTION [None]
